FAERS Safety Report 9225541 (Version 1)
Quarter: 2013Q2

REPORT INFORMATION
  Report Type: Spontaneous
  Country: US (occurrence: None)
  Receive Date: 20130410
  Receipt Date: 20130410
  Transmission Date: 20140414
  Serious: Yes (Life-Threatening)
  Sender: FDA-Public Use
  Company Number: None

PATIENT
  Age: 66 Year
  Sex: Female
  Weight: 54.43 kg

DRUGS (10)
  1. IMITREX [Suspect]
     Indication: MIGRAINE
     Dosage: 100MG, FOUR TIMES WEEKLY, PO
     Route: 048
     Dates: start: 19980101, end: 20130409
  2. NSAIDS [Concomitant]
  3. ULORIC [Concomitant]
  4. CELEBREX [Concomitant]
  5. BUPROPION [Concomitant]
  6. TOPAMAX [Concomitant]
  7. OMEPRAZOLE [Concomitant]
  8. ATIVAN PRN [Concomitant]
  9. CYCLOBENZAPRINE PRN [Concomitant]
  10. SUCRALFATE [Concomitant]

REACTIONS (3)
  - Renal failure chronic [None]
  - Hypercholesterolaemia [None]
  - Hypertension [None]
